FAERS Safety Report 11503335 (Version 1)
Quarter: 2015Q3

REPORT INFORMATION
  Report Type: Spontaneous
  Country: US (occurrence: US)
  Receive Date: 20150914
  Receipt Date: 20150914
  Transmission Date: 20151125
  Serious: No
  Sender: FDA-Public Use
  Company Number: US-BAYER-2015-415382

PATIENT
  Age: 58 Year
  Sex: Female
  Weight: 38.55 kg

DRUGS (1)
  1. MIRALAX [Suspect]
     Active Substance: POLYETHYLENE GLYCOL 3350
     Indication: CONSTIPATION
     Dosage: UNK, PRN
     Route: 048
     Dates: start: 2014

REACTIONS (4)
  - Dehydration [None]
  - Palpitations [None]
  - Underdose [None]
  - Chapped lips [None]
